FAERS Safety Report 11537273 (Version 1)
Quarter: 2015Q3

REPORT INFORMATION
  Report Type: Report from Study
  Country: BR (occurrence: BR)
  Receive Date: 20150922
  Receipt Date: 20150922
  Transmission Date: 20151125
  Serious: Yes (Death, Other)
  Sender: FDA-Public Use
  Company Number: PHHY2015BR113961

PATIENT
  Sex: Female
  Weight: 41 kg

DRUGS (1)
  1. EXJADE [Suspect]
     Active Substance: DEFERASIROX
     Indication: SICKLE CELL ANAEMIA
     Dosage: 3 DF, UNK
     Route: 065

REACTIONS (3)
  - Sickle cell anaemia with crisis [Fatal]
  - Cardio-respiratory arrest [Fatal]
  - Disease progression [Fatal]
